FAERS Safety Report 16413900 (Version 4)
Quarter: 2019Q4

REPORT INFORMATION
  Report Type: Spontaneous
  Country: RO (occurrence: RO)
  Receive Date: 20190611
  Receipt Date: 20191205
  Transmission Date: 20200122
  Serious: Yes (Other)
  Sender: FDA-Public Use
  Company Number: RO-ACCORD-131969

PATIENT
  Age: 20 Year
  Sex: Male

DRUGS (3)
  1. RISPERIDONE. [Suspect]
     Active Substance: RISPERIDONE
     Indication: SCHIZOPHRENIA
     Dosage: 8 MILLIGRAM, QD
  2. PAROXETINE. [Suspect]
     Active Substance: PAROXETINE
     Indication: SCHIZOPHRENIA
     Dosage: UNK
  3. CLOZAPINE. [Suspect]
     Active Substance: CLOZAPINE
     Indication: SCHIZOPHRENIA
     Route: 048

REACTIONS (12)
  - Lipoma [Unknown]
  - Somatic dysfunction [Unknown]
  - Neutropenia [Unknown]
  - Thrombotic thrombocytopenic purpura [Unknown]
  - Extrapyramidal disorder [Unknown]
  - Meningioma [Unknown]
  - Confusional state [Unknown]
  - Nervous system disorder [Unknown]
  - Neuroleptic malignant syndrome [Unknown]
  - Pyrexia [Unknown]
  - Affective disorder [Unknown]
  - Somatic symptom disorder [Unknown]
